FAERS Safety Report 9161128 (Version 2)
Quarter: 2013Q1

REPORT INFORMATION
  Report Type: Report from Study
  Country: RU (occurrence: RU)
  Receive Date: 20130313
  Receipt Date: 20130329
  Transmission Date: 20140127
  Serious: Yes (Death)
  Sender: FDA-Public Use
  Company Number: RU-ABBOTT-13P-251-1061680-00

PATIENT
  Sex: Male

DRUGS (1)
  1. LUCRIN DEPOT [Suspect]
     Indication: PROSTATE CANCER
     Dates: start: 20120305, end: 201205

REACTIONS (1)
  - Prostate cancer [Fatal]
